FAERS Safety Report 24112006 (Version 2)
Quarter: 2024Q3

REPORT INFORMATION
  Report Type: Report from Study
  Country: US (occurrence: US)
  Receive Date: 20240718
  Receipt Date: 20240807
  Transmission Date: 20241016
  Serious: No
  Sender: ALEXION PHARMACEUTICALS
  Company Number: US-AstraZeneca-CH-00664320A

PATIENT
  Sex: Male

DRUGS (2)
  1. ULTOMIRIS [Suspect]
     Active Substance: RAVULIZUMAB-CWVZ
     Indication: Myasthenia gravis
     Dosage: UNK UNK, Q56
     Route: 065
  2. ULTOMIRIS [Suspect]
     Active Substance: RAVULIZUMAB-CWVZ
     Dosage: UNK, EVERY 7 WEEKS
     Route: 065

REACTIONS (7)
  - Therapeutic response shortened [Unknown]
  - Feeling hot [Unknown]
  - Hyperhidrosis [Unknown]
  - Dyspnoea [Unknown]
  - Vision blurred [Unknown]
  - Asthenopia [Unknown]
  - Strabismus [Unknown]
